FAERS Safety Report 12525679 (Version 1)
Quarter: 2016Q3

REPORT INFORMATION
  Report Type: Spontaneous
  Country: US (occurrence: US)
  Receive Date: 20160705
  Receipt Date: 20160705
  Transmission Date: 20161109
  Serious: Yes (Hospitalization)
  Sender: FDA-Public Use
  Company Number: US-ASTRAZENECA-2016SE72677

PATIENT

DRUGS (1)
  1. PRILOSEC OTC [Suspect]
     Active Substance: OMEPRAZOLE MAGNESIUM
     Route: 048

REACTIONS (5)
  - Chest pain [Recovering/Resolving]
  - Adverse event [Recovering/Resolving]
  - Dysphagia [Unknown]
  - Oesophageal spasm [Recovering/Resolving]
  - Gastrointestinal disorder [Recovering/Resolving]
